FAERS Safety Report 10036771 (Version 1)
Quarter: 2014Q1

REPORT INFORMATION
  Report Type: Spontaneous
  Country: US (occurrence: US)
  Receive Date: 20140326
  Receipt Date: 20140326
  Transmission Date: 20141002
  Serious: No
  Sender: FDA-Public Use
  Company Number: US-BIOGENIDEC-2014BI024877

PATIENT
  Sex: Female

DRUGS (10)
  1. TECFIDERA [Suspect]
     Indication: PRODUCT USED FOR UNKNOWN INDICATION
     Route: 048
  2. XANAX [Concomitant]
  3. LISINOPRIL [Concomitant]
  4. FLONASE SPR 0.05% [Concomitant]
  5. TOPROL XL [Concomitant]
  6. ZANTAC [Concomitant]
  7. PROAIR HFA [Concomitant]
  8. CALCIUM+D [Concomitant]
  9. ASPIRIN EC [Concomitant]
  10. ZOFRAM [Concomitant]

REACTIONS (4)
  - Sinusitis [Unknown]
  - Feeling abnormal [Unknown]
  - Headache [Unknown]
  - Nausea [Unknown]
